FAERS Safety Report 7353824-5 (Version None)
Quarter: 2011Q1

REPORT INFORMATION
  Report Type: 
  Country: None (occurrence: None)
  Receive Date: 20110315
  Receipt Date: 20110311
  Transmission Date: 20110831
  Serious: Yes (Other)
  Sender: FDA-Public Use
  Company Number: US-AMGEN-USASP2011014104

PATIENT
  Sex: Female

DRUGS (3)
  1. NPLATE [Suspect]
     Dates: start: 20100910, end: 20100924
  2. CORTICOSTEROIDS [Concomitant]
     Indication: IDIOPATHIC THROMBOCYTOPENIC PURPURA
     Dosage: UNK
     Dates: start: 20100817
  3. NPLATE [Suspect]
     Indication: IDIOPATHIC THROMBOCYTOPENIC PURPURA
     Dosage: 72.6 A?, UNK
     Dates: start: 20100910, end: 20100924

REACTIONS (1)
  - MYELODYSPLASTIC SYNDROME [None]
